FAERS Safety Report 5741091-5 (Version None)
Quarter: 2008Q2

REPORT INFORMATION
  Report Type: 
  Country: None (occurrence: None)
  Receive Date: 20080514
  Receipt Date: 20080503
  Transmission Date: 20081010
  Serious: Yes (Other)
  Sender: FDA-Public Use
  Company Number: CHPA2008US07715

PATIENT
  Age: 66 Year
  Sex: Female

DRUGS (1)
  1. DENAVIR [Suspect]
     Indication: ORAL HERPES
     Dosage: 2 TO 3 TIMES A DAY, TOPICAL
     Route: 061
     Dates: start: 20080428, end: 20080429

REACTIONS (4)
  - APPLICATION SITE BLEEDING [None]
  - APPLICATION SITE BURN [None]
  - APPLICATION SITE ERYTHEMA [None]
  - WRONG TECHNIQUE IN DRUG USAGE PROCESS [None]
